FAERS Safety Report 24307462 (Version 1)
Quarter: 2024Q3

REPORT INFORMATION
  Report Type: Spontaneous
  Country: US (occurrence: None)
  Receive Date: 20240911
  Receipt Date: 20240911
  Transmission Date: 20241017
  Serious: Yes (Hospitalization)
  Sender: Public
  Company Number: None

PATIENT
  Sex: Female
  Weight: 39.7 kg

DRUGS (2)
  1. LOMUSTINE [Suspect]
     Active Substance: LOMUSTINE
  2. TEMOZOLOMIDE [Concomitant]
     Active Substance: TEMOZOLOMIDE

REACTIONS (29)
  - Dehydration [None]
  - Sepsis [None]
  - Uraemic encephalopathy [None]
  - Decreased appetite [None]
  - Failure to thrive [None]
  - Cachexia [None]
  - Asthenia [None]
  - Mutism [None]
  - Acute respiratory failure [None]
  - Respiratory failure [None]
  - Shock [None]
  - Lymphocyte count decreased [None]
  - Lactic acidosis [None]
  - Malnutrition [None]
  - Hyperglycaemia [None]
  - Hypernatraemia [None]
  - Hypercalcaemia [None]
  - Hypoalbuminaemia [None]
  - Alanine aminotransferase increased [None]
  - Aspartate aminotransferase increased [None]
  - Hypermagnesaemia [None]
  - Atrial fibrillation [None]
  - Weight decreased [None]
  - Pain [None]
  - Nausea [None]
  - Discharge [None]
  - Encephalopathy [None]
  - Thrombocytopenia [None]
  - Multiple organ dysfunction syndrome [None]

NARRATIVE: CASE EVENT DATE: 20240820
